FAERS Safety Report 7097929-5 (Version None)
Quarter: 2010Q4

REPORT INFORMATION
  Report Type: 
  Country: None (occurrence: None)
  Receive Date: 20101104
  Receipt Date: 20101019
  Transmission Date: 20110411
  Serious: Yes (Hospitalization)
  Sender: FDA-Public Use
  Company Number: 2009002389

PATIENT
  Age: 65 Year
  Sex: Male
  Weight: 55 kg

DRUGS (7)
  1. ERLOTINIB HYDROCHLORIDE [Suspect]
     Indication: NON-SMALL CELL LUNG CANCER
     Dosage: 100 MG, QD, ORAL
     Route: 048
     Dates: start: 20090422
  2. CP-751, 871 (INJECTION FOR INFUSION) [Suspect]
     Indication: NON-SMALL CELL LUNG CANCER
     Dosage: 1106 MG, CYCLIC EVERY 3 WEEKS, INTRAVENOUS
     Route: 042
     Dates: start: 20090422
  3. CODEINE [Concomitant]
  4. SERETIDE [Concomitant]
  5. SPIRIVA [Concomitant]
  6. OMEPRAZOLE [Concomitant]
  7. NYSTATIN [Concomitant]

REACTIONS (2)
  - EMPHYSEMA [None]
  - PNEUMOTHORAX [None]
